FAERS Safety Report 10503187 (Version 2)
Quarter: 2014Q4

REPORT INFORMATION
  Report Type: Spontaneous
  Country: DE (occurrence: DE)
  Receive Date: 20141007
  Receipt Date: 20141017
  Transmission Date: 20150528
  Serious: Yes (Life-Threatening, Hospitalization)
  Sender: FDA-Public Use
  Company Number: DE-BRISTOL-MYERS SQUIBB COMPANY-21456025

PATIENT
  Age: 63 Year
  Sex: Male

DRUGS (3)
  1. KOMBOGLYZE [Suspect]
     Active Substance: METFORMIN HYDROCHLORIDE\SAXAGLIPTIN
     Indication: TYPE 2 DIABETES MELLITUS
     Dosage: 1 DF: 2.5/850
     Dates: start: 201403, end: 201407
  2. MOXONIDINE [Suspect]
     Active Substance: MOXONIDINE
     Indication: HYPERTENSION
  3. METOPROLOL [Concomitant]
     Active Substance: METOPROLOL
     Indication: HYPERTENSION

REACTIONS (17)
  - Myopathy [Unknown]
  - Colitis [Unknown]
  - Septic shock [Unknown]
  - Acute respiratory failure [Unknown]
  - Hypoalbuminaemia [Unknown]
  - Hypokalaemia [Unknown]
  - Hepatic lesion [Unknown]
  - Pleural effusion [Unknown]
  - Renal failure [Unknown]
  - Polyneuropathy [Unknown]
  - Atrial fibrillation [Unknown]
  - Pancreatitis necrotising [Unknown]
  - Multi-organ failure [Unknown]
  - Seizure [Unknown]
  - Hypertensive crisis [Unknown]
  - Hemiparesis [Unknown]
  - Duodenitis [Unknown]
